FAERS Safety Report 7034773-9 (Version None)
Quarter: 2010Q4

REPORT INFORMATION
  Report Type: 
  Country: None (occurrence: None)
  Receive Date: 20101008
  Receipt Date: 20101004
  Transmission Date: 20110411
  Serious: Yes (Death)
  Sender: FDA-Public Use
  Company Number: PHHY2010MX28725

PATIENT
  Sex: Female

DRUGS (1)
  1. FEMARA [Suspect]
     Indication: BONE NEOPLASM MALIGNANT
     Dosage: 1 TABLET (2.5 MG)/DAY
     Route: 048
     Dates: start: 20060801, end: 20080301

REACTIONS (2)
  - MALIGNANT NEOPLASM PROGRESSION [None]
  - METASTASES TO LUNG [None]
